FAERS Safety Report 11478876 (Version 1)
Quarter: 2015Q3

REPORT INFORMATION
  Report Type: Spontaneous
  Country: US (occurrence: US)
  Receive Date: 20150909
  Receipt Date: 20150909
  Transmission Date: 20151125
  Serious: No
  Sender: FDA-Public Use
  Company Number: US-JAZZ-2014-US-012225

PATIENT
  Sex: Female
  Weight: 105.6 kg

DRUGS (6)
  1. XYREM [Suspect]
     Active Substance: SODIUM OXYBATE
     Dosage: DOSE ADJUSTMENTS
     Route: 048
  2. XYREM [Suspect]
     Active Substance: SODIUM OXYBATE
     Indication: DYSSOMNIA
     Dosage: 2.25 G, BID
     Route: 048
     Dates: start: 200612, end: 2007
  3. XYREM [Suspect]
     Active Substance: SODIUM OXYBATE
     Dosage: 4 G, TID
     Route: 048
     Dates: start: 201212
  4. SYNTHROID [Concomitant]
     Active Substance: LEVOTHYROXINE SODIUM
     Indication: HUERTHLE CELL CARCINOMA
     Dosage: 150 ?G, QD
     Route: 048
  5. XYREM [Suspect]
     Active Substance: SODIUM OXYBATE
     Dosage: 2.75 G, TID
     Route: 048
     Dates: start: 201305
  6. SYNTHROID [Concomitant]
     Active Substance: LEVOTHYROXINE SODIUM
     Indication: THYROID OPERATION

REACTIONS (8)
  - Off label use [Unknown]
  - Back pain [Not Recovered/Not Resolved]
  - Contusion [Recovered/Resolved]
  - Fall [Recovered/Resolved]
  - Pain in extremity [Not Recovered/Not Resolved]
  - Vomiting [Recovered/Resolved]
  - Blood pressure increased [Recovering/Resolving]
  - Intervertebral disc protrusion [Not Recovered/Not Resolved]

NARRATIVE: CASE EVENT DATE: 2011
